FAERS Safety Report 9310712 (Version 1)
Quarter: 2013Q2

REPORT INFORMATION
  Report Type: Spontaneous
  Country: US (occurrence: US)
  Receive Date: 20130527
  Receipt Date: 20130527
  Transmission Date: 20140414
  Serious: No
  Sender: FDA-Public Use
  Company Number: US-B.I. PHARMACEUTICALS,INC./RIDGEFIELD-2013-BI-14634BP

PATIENT
  Age: 0 Day
  Sex: Female

DRUGS (1)
  1. VIRAMUNE SUSPENSION [Suspect]
     Indication: HIV INFECTION
     Dosage: STRENGTH: 10 MG / ML
     Route: 048
     Dates: start: 20130520

REACTIONS (1)
  - Overdose [Recovered/Resolved]
